FAERS Safety Report 11688176 (Version 1)
Quarter: 2015Q4

REPORT INFORMATION
  Report Type: Spontaneous
  Country: ES (occurrence: ES)
  Receive Date: 20151030
  Receipt Date: 20151030
  Transmission Date: 20160304
  Serious: Yes (Hospitalization)
  Sender: FDA-Public Use
  Company Number: ES-ABBVIE-15P-144-1486286-00

PATIENT
  Age: 81 Year
  Sex: Male

DRUGS (9)
  1. DASABUVIR [Concomitant]
     Active Substance: DASABUVIR
     Indication: PRODUCT USED FOR UNKNOWN INDICATION
     Dates: start: 20150507
  2. ZYLORIC [Concomitant]
     Active Substance: ALLOPURINOL
     Indication: PRODUCT USED FOR UNKNOWN INDICATION
  3. FUROSEMIDA [Concomitant]
     Active Substance: FUROSEMIDE
     Indication: PRODUCT USED FOR UNKNOWN INDICATION
     Dates: start: 20150622
  4. RIBAVIRON C [Concomitant]
     Active Substance: RIBAVIRIN
     Indication: PRODUCT USED FOR UNKNOWN INDICATION
  5. OMEPRAZOLE. [Concomitant]
     Active Substance: OMEPRAZOLE
     Indication: PRODUCT USED FOR UNKNOWN INDICATION
  6. PREDNISONA [Suspect]
     Active Substance: PREDNISONE
     Indication: VIITH NERVE PARALYSIS
     Dosage: 50 MG X 5 DAYS, 25 MG X 5DAYS, 12.5 MG X 5 DAYS
     Route: 065
     Dates: start: 20150919
  7. LINAGLIPTINA [Concomitant]
     Indication: PRODUCT USED FOR UNKNOWN INDICATION
  8. IBERSARTAN/HIDROCLOROTIAZIDA [Concomitant]
     Indication: PRODUCT USED FOR UNKNOWN INDICATION
     Dosage: 300/25 MG/DAY
  9. VIEKIRAX [Interacting]
     Active Substance: OMBITASVIR\PARITAPREVIR\RITONAVIR
     Indication: HEPATITIS C
     Route: 048
     Dates: start: 20150507

REACTIONS (2)
  - Hyperglycaemia [Recovered/Resolved]
  - Drug interaction [Unknown]

NARRATIVE: CASE EVENT DATE: 20150923
